FAERS Safety Report 21365720 (Version 3)
Quarter: 2025Q4

REPORT INFORMATION
  Report Type: Report from Study
  Country: US (occurrence: US)
  Receive Date: 20220922
  Receipt Date: 20251016
  Transmission Date: 20260118
  Serious: Yes (Hospitalization)
  Sender: EMD SERONO INC
  Company Number: US-Merck Healthcare KGaA-9304483

PATIENT
  Sex: Female

DRUGS (1)
  1. MAVENCLAD [Suspect]
     Active Substance: CLADRIBINE
     Indication: Relapsing-remitting multiple sclerosis
     Dosage: YEAR ONE MONTH ONE THERAPY: 2 TABLETS ON DAYS 1 AND 2 AND 1 TABLET ON DAYS 3 TO 5
     Dates: start: 20210405

REACTIONS (4)
  - Full blood count decreased [Unknown]
  - White blood cell count decreased [Recovered/Resolved]
  - Lymphopenia [Unknown]
  - Ill-defined disorder [Unknown]
